FAERS Safety Report 11235360 (Version 1)
Quarter: 2015Q3

REPORT INFORMATION
  Report Type: Spontaneous
  Country: US (occurrence: US)
  Receive Date: 20150702
  Receipt Date: 20150702
  Transmission Date: 20151125
  Serious: No
  Sender: FDA-Public Use
  Company Number: US-MALLINCKRODT-T201502088

PATIENT
  Sex: Female

DRUGS (9)
  1. OFIRMEV [Suspect]
     Active Substance: ACETAMINOPHEN
     Indication: CAESAREAN SECTION
     Dosage: 1 GRAM
     Route: 042
     Dates: start: 20150306, end: 20150306
  2. MORPHINE [Concomitant]
     Active Substance: MORPHINE
     Indication: CAESAREAN SECTION
     Dosage: UNK
     Dates: start: 20150306
  3. PITOCIN [Concomitant]
     Active Substance: OXYTOCIN
     Indication: CAESAREAN SECTION
     Dosage: UNK
     Dates: start: 20150306
  4. FENTANYL. [Concomitant]
     Active Substance: FENTANYL
     Indication: CAESAREAN SECTION
     Dosage: UNK
     Dates: start: 20150306
  5. LACTATED RINGERS [Concomitant]
     Active Substance: CALCIUM CHLORIDE\POTASSIUM CHLORIDE\SODIUM CHLORIDE\SODIUM LACTATE
     Indication: CAESAREAN SECTION
     Dosage: UNK
     Dates: start: 20150306
  6. EPHEDRINE. [Concomitant]
     Active Substance: EPHEDRINE
     Indication: CAESAREAN SECTION
     Dosage: UNK
     Dates: start: 20150306
  7. DECADRON [Concomitant]
     Active Substance: DEXAMETHASONE
     Indication: CAESAREAN SECTION
     Dosage: UNK
     Dates: start: 20150306
  8. TORADOL [Concomitant]
     Active Substance: KETOROLAC TROMETHAMINE
     Indication: CAESAREAN SECTION
     Dosage: UNK
     Dates: start: 20150306
  9. ZOFRAN [Concomitant]
     Active Substance: ONDANSETRON HYDROCHLORIDE
     Indication: CAESAREAN SECTION
     Dosage: UNK
     Dates: start: 20150306

REACTIONS (1)
  - Body temperature decreased [Recovered/Resolved]

NARRATIVE: CASE EVENT DATE: 20150306
